FAERS Safety Report 5190025-3 (Version None)
Quarter: 2006Q4

REPORT INFORMATION
  Report Type: 
  Country: None (occurrence: None)
  Receive Date: 20061218
  Receipt Date: 20061204
  Transmission Date: 20070319
  Serious: Yes (Hospitalization)
  Sender: FDA-Public Use
  Company Number: SPV1-2006-01564

PATIENT
  Age: 36 Year
  Sex: Male

DRUGS (2)
  1. PENTASA [Suspect]
     Dosage: SEE IMAGE
     Route: 048
     Dates: start: 20060921, end: 20061016
  2. PENTASA [Suspect]
     Dosage: SEE IMAGE
     Route: 048
     Dates: start: 20050318

REACTIONS (5)
  - ACQUIRED IMMUNODEFICIENCY SYNDROME [None]
  - DISSEMINATED TUBERCULOSIS [None]
  - HIV TEST POSITIVE [None]
  - MUCOUS STOOLS [None]
  - PNEUMONIA VIRAL [None]
